FAERS Safety Report 19068500 (Version 1)
Quarter: 2021Q1

REPORT INFORMATION
  Report Type: Spontaneous
  Country: CN (occurrence: CN)
  Receive Date: 20210329
  Receipt Date: 20210329
  Transmission Date: 20210420
  Serious: Yes (Hospitalization)
  Sender: FDA-Public Use
  Company Number: CN-PFIZER INC-2021277356

PATIENT
  Sex: Female

DRUGS (3)
  1. ZYVOX [Suspect]
     Active Substance: LINEZOLID
     Indication: BILIARY OBSTRUCTION
     Dosage: UNK
  2. ZYVOX [Suspect]
     Active Substance: LINEZOLID
     Indication: BILIARY OBSTRUCTION
     Dosage: 1 DF, EVERY 3 DAYS
     Route: 048
     Dates: start: 20210310
  3. ZYVOX [Suspect]
     Active Substance: LINEZOLID
     Dosage: 1 DF, EVERY 3 DAYS
     Route: 048
     Dates: start: 20210313

REACTIONS (2)
  - Off label use [Unknown]
  - Pyrexia [Recovering/Resolving]

NARRATIVE: CASE EVENT DATE: 20210313
